FAERS Safety Report 8397207 (Version 3)
Quarter: 2020Q3

REPORT INFORMATION
  Report Type: Report from Study
  Country: UA (occurrence: UA)
  Receive Date: 20120209
  Receipt Date: 20120216
  Transmission Date: 20201105
  Serious: Yes (Death, Life-Threatening)
  Sender: FDA-Public Use
  Company Number: UA-JNJFOC-20120203872

PATIENT
  Age: 53 Year
  Sex: Male
  Weight: 87 kg

DRUGS (3)
  1. PALIPERIDONE PALMITATE [Suspect]
     Active Substance: PALIPERIDONE PALMITATE
     Route: 030
  2. PALIPERIDONE PALMITATE [Suspect]
     Active Substance: PALIPERIDONE PALMITATE
     Indication: SCHIZOAFFECTIVE DISORDER
     Route: 030
     Dates: start: 20110906, end: 20120104
  3. LITHIUM CARBONATE. [Concomitant]
     Active Substance: LITHIUM CARBONATE
     Indication: SCHIZOAFFECTIVE DISORDER
     Route: 048
     Dates: start: 20080724

REACTIONS (1)
  - Completed suicide [Fatal]

NARRATIVE: CASE EVENT DATE: 20120118
